FAERS Safety Report 4836596-5 (Version None)
Quarter: 2005Q4

REPORT INFORMATION
  Report Type: 
  Country: None (occurrence: None)
  Receive Date: 20051121
  Receipt Date: 20051109
  Transmission Date: 20060501
  Serious: Yes (Hospitalization, Other)
  Sender: FDA-Public Use
  Company Number: 2005154103

PATIENT
  Age: 44 Year
  Sex: Female
  Weight: 68.6 kg

DRUGS (5)
  1. AROMASIN [Suspect]
     Indication: BREAST CANCER
     Dosage: 25 MG (25 MG, DAILY), ORAL
     Route: 048
     Dates: start: 20040801, end: 20051101
  2. TRIPTORELIN (TRIPTORELIN) [Suspect]
     Indication: BREAST CANCER
     Dosage: 3.75 MG (3.75 MG, EVERY 28 DAYS), INTRAMUSCULAR
     Route: 030
     Dates: start: 20040801
  3. LEXAPRO [Concomitant]
  4. TRAZODONE HCL [Concomitant]
  5. VAGIFEM [Concomitant]

REACTIONS (2)
  - DYSPNOEA [None]
  - TACHYCARDIA [None]
